FAERS Safety Report 21515817 (Version 2)
Quarter: 2022Q4

REPORT INFORMATION
  Report Type: Spontaneous
  Country: US (occurrence: US)
  Receive Date: 20221027
  Receipt Date: 20221109
  Transmission Date: 20230113
  Serious: Yes (Other)
  Sender: FDA-Public Use
  Company Number: US-TEVA-2022-US-2818699

PATIENT
  Age: 26 Year
  Sex: Female

DRUGS (6)
  1. ACETAMINOPHEN\HYDROCODONE [Suspect]
     Active Substance: ACETAMINOPHEN\HYDROCODONE
     Indication: Back pain
     Route: 048
  2. BUPRENORPHINE\NALOXONE [Suspect]
     Active Substance: BUPRENORPHINE\NALOXONE
     Indication: Drug use disorder
     Dosage: BUPRENORPHINE/NALOXONE 8/2 MG/DAY
     Route: 060
  3. BUPRENORPHINE\NALOXONE [Suspect]
     Active Substance: BUPRENORPHINE\NALOXONE
     Dosage: BUPRENORPHINE/NALOXONE 16/8 MG/DAY
     Route: 060
  4. MIDOMAFETAMINE [Concomitant]
     Active Substance: MIDOMAFETAMINE
     Indication: Product used for unknown indication
     Route: 065
  5. NALOXONE [Concomitant]
     Active Substance: NALOXONE
     Indication: Accidental overdose
     Route: 065
  6. DULOXETINE [Concomitant]
     Active Substance: DULOXETINE
     Indication: Depression
     Dosage: 30 MILLIGRAM DAILY;
     Route: 048

REACTIONS (6)
  - Drug use disorder [Recovering/Resolving]
  - Loss of consciousness [Recovering/Resolving]
  - Central sleep apnoea syndrome [Recovered/Resolved]
  - Agitation [Recovering/Resolving]
  - Drug abuse [Recovering/Resolving]
  - Accidental overdose [Recovering/Resolving]
